FAERS Safety Report 16066910 (Version 3)
Quarter: 2019Q1

REPORT INFORMATION
  Report Type: Report from Study
  Country: CA (occurrence: CA)
  Receive Date: 20190313
  Receipt Date: 20190329
  Transmission Date: 20190418
  Serious: Yes (Death)
  Sender: FDA-Public Use
  Company Number: PHHO2019CA002833

PATIENT
  Age: 56 Year
  Sex: Male
  Weight: 61 kg

DRUGS (26)
  1. METOCLOPRAMIDE. [Concomitant]
     Active Substance: METOCLOPRAMIDE
     Indication: NAUSEA
     Dosage: 10 MG, TID
     Route: 042
     Dates: start: 20190119
  2. SULFATRIM [Concomitant]
     Active Substance: SULFAMETHOXAZOLE\TRIMETHOPRIM
     Indication: INFECTION PROPHYLAXIS
     Dosage: 400-80 MG QD
     Route: 048
     Dates: start: 20190121
  3. HYOSCINE BUTYLBROMINE [Concomitant]
     Indication: ABDOMINAL PAIN
     Dosage: 10 MG, QID
     Route: 042
     Dates: start: 20190122
  4. ACYCLOVIR. [Concomitant]
     Active Substance: ACYCLOVIR
     Indication: PROPHYLAXIS
     Dosage: 800 MG, QD
     Route: 042
     Dates: start: 20190125
  5. FUROSEMIDE. [Concomitant]
     Active Substance: FUROSEMIDE
     Indication: OEDEMA PERIPHERAL
     Dosage: 20 MG, UNK
     Route: 048
     Dates: start: 20190205
  6. METHYLPREDNISOLONE. [Concomitant]
     Active Substance: METHYLPREDNISOLONE
     Indication: PRODUCT USED FOR UNKNOWN INDICATION
     Dosage: 70 MG, Q12H
     Route: 042
     Dates: start: 20190122
  7. TPN [Concomitant]
     Active Substance: AMINO ACIDS\DEXTROSE\ELECTROLYTES NOS\SOYBEAN OIL
     Indication: DRY MOUTH
     Dosage: 70 ML/HR, 1
     Route: 065
     Dates: start: 20190124
  8. PANTOPRAZOLE [Concomitant]
     Active Substance: PANTOPRAZOLE
     Indication: GASTROOESOPHAGEAL REFLUX PROPHYLAXIS
     Dosage: 40 MG, QD
     Route: 042
     Dates: start: 20190125
  9. TACROLIMUS. [Suspect]
     Active Substance: TACROLIMUS
     Indication: TRANSPLANT REJECTION
     Dosage: 0.25 MG, BID
     Route: 048
     Dates: start: 20190209, end: 20190306
  10. SOLU-MEDROL [Suspect]
     Active Substance: METHYLPREDNISOLONE SODIUM SUCCINATE
     Indication: PRODUCT USED FOR UNKNOWN INDICATION
     Dosage: 70 MG, Q12H
     Route: 042
     Dates: start: 20190122
  11. SALIVA [Concomitant]
     Indication: DRY MOUTH
     Dosage: 1 DF, PRN
     Route: 048
     Dates: start: 20190121
  12. CHLORPROMAZINE. [Concomitant]
     Active Substance: CHLORPROMAZINE
     Indication: NAUSEA
     Dosage: 25 MG, QID
     Route: 048
     Dates: start: 20190124
  13. LORAZEPAM. [Concomitant]
     Active Substance: LORAZEPAM
     Indication: ANXIETY
     Dosage: 1 MG, PRN
     Route: 060
     Dates: start: 20190131
  14. URSODIOL. [Concomitant]
     Active Substance: URSODIOL
     Indication: HEPATIC FAILURE
     Dosage: 250 MG, QID
     Route: 048
     Dates: start: 20190208
  15. LANTUS [Concomitant]
     Active Substance: INSULIN GLARGINE
     Indication: HYPERGLYCAEMIA
     Dosage: 24 U, QD
     Route: 058
     Dates: start: 20190213
  16. FENTANYL. [Concomitant]
     Active Substance: FENTANYL
     Indication: ABDOMINAL PAIN
     Dosage: 50 UG, QID
     Route: 062
     Dates: start: 20190214
  17. CANDESARTAN. [Concomitant]
     Active Substance: CANDESARTAN
     Indication: HYPERTENSION
     Dosage: 4 MG, QD
     Route: 048
     Dates: start: 20190119
  18. NOVORAPID [Concomitant]
     Active Substance: INSULIN ASPART
     Indication: HYPERGLYCAEMIA
     Dosage: UNK
     Route: 058
     Dates: start: 20190129
  19. INC424 [Suspect]
     Active Substance: RUXOLITINIB
     Indication: ACUTE GRAFT VERSUS HOST DISEASE
     Dosage: 10 MG, BID
     Route: 048
     Dates: start: 20190301, end: 20190307
  20. ETANERCEPT [Suspect]
     Active Substance: ETANERCEPT
     Indication: ACUTE GRAFT VERSUS HOST DISEASE
     Dosage: 25 MG, QD
     Route: 058
     Dates: start: 20190201
  21. DIMENHYDRINATE. [Concomitant]
     Active Substance: DIMENHYDRINATE
     Indication: NAUSEA
     Dosage: 50 MG, QID
     Route: 042
     Dates: start: 20190121
  22. PROCHLORPERAZINE. [Concomitant]
     Active Substance: PROCHLORPERAZINE
     Indication: NAUSEA
     Dosage: 10 MG, QID
     Route: 048
     Dates: start: 20190121
  23. HYDROMORPHONE [Concomitant]
     Active Substance: HYDROMORPHONE
     Indication: ABDOMINAL PAIN
     Dosage: 2 MG, PRN
     Route: 048
     Dates: start: 20190123
  24. TPN [Concomitant]
     Active Substance: AMINO ACIDS\DEXTROSE\ELECTROLYTES NOS\SOYBEAN OIL
     Indication: DYSPHAGIA
  25. ENOXAPARIN [Concomitant]
     Active Substance: ENOXAPARIN
     Indication: DEEP VEIN THROMBOSIS
     Dosage: 60 MG, BID
     Route: 058
     Dates: start: 20190213
  26. SANDOSTATIN [Concomitant]
     Active Substance: OCTREOTIDE ACETATE
     Indication: DIARRHOEA
     Dosage: 100 UG, TID
     Route: 042
     Dates: start: 20190213

REACTIONS (1)
  - Cerebrovascular accident [Fatal]

NARRATIVE: CASE EVENT DATE: 20190307
